FAERS Safety Report 4639301-0 (Version None)
Quarter: 2005Q2

REPORT INFORMATION
  Report Type: 
  Country: None (occurrence: None)
  Receive Date: 20050418
  Receipt Date: 20050406
  Transmission Date: 20051028
  Serious: Yes (Hospitalization, Other)
  Sender: FDA-Public Use
  Company Number: USA-2003-0005428

PATIENT
  Age: 48 Year
  Sex: Male
  Weight: 88 kg

DRUGS (16)
  1. OXYCONTIN [Suspect]
     Indication: PAIN
     Dosage: SEE IMAGE
     Route: 048
     Dates: start: 19980625, end: 20010401
  2. NORFLEX [Concomitant]
  3. EXTRA STRENGTH TYLENOL [Concomitant]
  4. XANAX [Concomitant]
  5. FLEXERIL [Concomitant]
  6. CYCLOBENZAPRINE HCL [Concomitant]
  7. FLONASE (FLUTICAZONE PROPIONATE) [Concomitant]
  8. ALGMENTIN (CLABULANATE POTASSIUM, AMOXICILLIN TRIHYDRATE) [Concomitant]
  9. FLOXIN OTIC (BENZALKONIUM CHLORIDE, SODIUM CHLORIDE, SODIUM HYDROXIDE) [Concomitant]
  10. LORTAB [Concomitant]
  11. DYPHYLLINE (DIPROPHYLLINE) [Concomitant]
  12. IBUPROFEN [Concomitant]
  13. BUSPAR [Concomitant]
  14. DEPAKOTE [Concomitant]
  15. ZYPREXA [Concomitant]
  16. HXA [Concomitant]

REACTIONS (27)
  - ACUTE PSYCHOSIS [None]
  - AFFECT LABILITY [None]
  - AGITATION [None]
  - ANXIETY [None]
  - BACK PAIN [None]
  - BIPOLAR I DISORDER [None]
  - BLOOD PRESSURE INCREASED [None]
  - DELUSION [None]
  - DEPRESSION [None]
  - DRUG INEFFECTIVE [None]
  - EMOTIONAL DISTRESS [None]
  - FALL [None]
  - FEELING ABNORMAL [None]
  - HALLUCINATION [None]
  - HALLUCINATION, VISUAL [None]
  - HOMICIDAL IDEATION [None]
  - INADEQUATE ANALGESIA [None]
  - INSOMNIA [None]
  - IRRITABILITY [None]
  - MOOD ALTERED [None]
  - MUSCLE CONTRACTIONS INVOLUNTARY [None]
  - PARANOIA [None]
  - POLYSUBSTANCE ABUSE [None]
  - RASH [None]
  - SUICIDAL IDEATION [None]
  - THINKING ABNORMAL [None]
  - TREMOR [None]
